FAERS Safety Report 8880304 (Version 2)
Quarter: 2013Q1

REPORT INFORMATION
  Report Type: Spontaneous
  Country: DK (occurrence: DK)
  Receive Date: 20121031
  Receipt Date: 20130206
  Transmission Date: 20140127
  Serious: Yes (Life-Threatening, Hospitalization)
  Sender: FDA-Public Use
  Company Number: PHHY2012DK097662

PATIENT
  Age: 85 Year
  Sex: Female

DRUGS (16)
  1. CIPROFLOXACIN [Suspect]
     Indication: ABDOMINAL DISCOMFORT
     Dosage: 500 MG, BID
     Route: 048
     Dates: start: 20121015, end: 20121019
  2. METHOTREXAT [Interacting]
     Indication: RHEUMATOID ARTHRITIS
     Dosage: 15 MG, BIW
     Route: 048
  3. LEVEMIR [Concomitant]
     Indication: DIABETES MELLITUS
  4. SAROTEN [Concomitant]
  5. DOMPERDONE [Concomitant]
  6. PLAQUENIL [Concomitant]
  7. AMLODIPIN ACTAVIS [Concomitant]
     Indication: HYPERTENSION
  8. OXYCONTIN [Concomitant]
  9. ANTISTINA-PRIVIN [Concomitant]
  10. ALLOPURINOL [Concomitant]
     Indication: GOUT
  11. CENTYL MED KALIUMKLORID [Concomitant]
     Indication: HYPERTENSION
  12. BETOLVEX [Concomitant]
     Indication: VITAMIN SUPPLEMENTATION
  13. MOXALOLE [Concomitant]
     Indication: CONSTIPATION
  14. TOILAX [Concomitant]
     Indication: CONSTIPATION
  15. PANTOPRAZOL ACTAVIS [Concomitant]
     Indication: GASTRIC PH DECREASED
  16. MAGNESIA ^DAK^ [Concomitant]
     Indication: CONSTIPATION

REACTIONS (4)
  - Dehydration [Unknown]
  - Pancytopenia [Not Recovered/Not Resolved]
  - Thrombocytopenia [Not Recovered/Not Resolved]
  - Drug interaction [Recovered/Resolved]
